FAERS Safety Report 19972832 (Version 1)
Quarter: 2021Q4

REPORT INFORMATION
  Report Type: Report from Study
  Country: CO (occurrence: CO)
  Receive Date: 20211020
  Receipt Date: 20211020
  Transmission Date: 20220303
  Serious: Yes (Other)
  Sender: FDA-Public Use
  Company Number: CO-NOVARTISPH-NVSC2021CO236696

PATIENT
  Age: 76 Year
  Sex: Female
  Weight: 65 kg

DRUGS (2)
  1. LUCENTIS [Suspect]
     Active Substance: RANIBIZUMAB
     Indication: Age-related macular degeneration
     Dosage: UNK, QMO
     Route: 047
     Dates: start: 201808, end: 201810
  2. ATORVASTATIN [Suspect]
     Active Substance: ATORVASTATIN
     Indication: Ischaemia
     Dosage: 40 MG, QD
     Route: 048
     Dates: start: 202011

REACTIONS (5)
  - Neovascular age-related macular degeneration [Unknown]
  - Computerised tomogram abnormal [Unknown]
  - Hypertension [Unknown]
  - Visual impairment [Not Recovered/Not Resolved]
  - Product use in unapproved indication [Unknown]

NARRATIVE: CASE EVENT DATE: 20210901
